FAERS Safety Report 11620886 (Version 3)
Quarter: 2015Q4

REPORT INFORMATION
  Report Type: Spontaneous
  Country: FR (occurrence: FR)
  Receive Date: 20151012
  Receipt Date: 20151124
  Transmission Date: 20160304
  Serious: Yes (Hospitalization)
  Sender: FDA-Public Use
  Company Number: FR-SA-2015SA153987

PATIENT
  Age: 64 Year
  Sex: Female

DRUGS (17)
  1. PANTOPRAZOLE [Concomitant]
     Active Substance: PANTOPRAZOLE SODIUM
     Dates: start: 20150829, end: 20150901
  2. AMOXICILLINE [Suspect]
     Active Substance: AMOXICILLIN
     Indication: PYELONEPHRITIS
     Route: 042
     Dates: start: 20150912
  3. LANTUS [Suspect]
     Active Substance: INSULIN GLARGINE
     Indication: TYPE 2 DIABETES MELLITUS
     Route: 058
  4. ATACAND [Suspect]
     Active Substance: CANDESARTAN CILEXETIL
     Indication: HYPERTENSION
     Route: 048
  5. BACTRIM [Concomitant]
     Active Substance: SULFAMETHOXAZOLE\TRIMETHOPRIM
     Dates: start: 20150901
  6. METFORMIN [Suspect]
     Active Substance: METFORMIN HYDROCHLORIDE
     Indication: TYPE 2 DIABETES MELLITUS
     Dosage: FORM:FILM-COATED DIVISIBLE TABLET
     Route: 048
     Dates: end: 20150915
  7. ESOMEPRAZOLE [Suspect]
     Active Substance: ESOMEPRAZOLE
     Route: 048
     Dates: start: 20150902, end: 20150912
  8. LANSOPRAZOLE. [Suspect]
     Active Substance: LANSOPRAZOLE
     Route: 048
     Dates: start: 20150912
  9. ARIXTRA [Concomitant]
     Active Substance: FONDAPARINUX SODIUM
  10. KARDEGIC [Concomitant]
     Active Substance: ASPIRIN LYSINE
  11. SANDOSTATIN [Concomitant]
     Active Substance: OCTREOTIDE ACETATE
     Dates: start: 20150829, end: 20150901
  12. LASILIX [Suspect]
     Active Substance: FUROSEMIDE
     Indication: CARDIAC FAILURE
     Dosage: DOSE, FREQUENCY:1 - 1 / 2 - 1?ROUTE: OPH
     Dates: start: 20150912, end: 20150915
  13. TAHOR [Suspect]
     Active Substance: ATORVASTATIN CALCIUM
     Indication: HYPERCHOLESTEROLAEMIA
     Route: 048
     Dates: end: 20150915
  14. CLARITHROMYCIN. [Concomitant]
     Active Substance: CLARITHROMYCIN
     Dates: start: 201509, end: 20150912
  15. DIAMICRON [Suspect]
     Active Substance: GLICLAZIDE
     Indication: TYPE 2 DIABETES MELLITUS
     Route: 048
  16. VICTOZA [Suspect]
     Active Substance: LIRAGLUTIDE
     Indication: TYPE 2 DIABETES MELLITUS
     Route: 058
  17. AMOXICILLIN/CLAVULANIC ACID [Suspect]
     Active Substance: AMOXICILLIN\CLAVULANIC ACID
     Indication: PYELONEPHRITIS
     Dosage: DOSE:1G / 200MG: 1 BOTTLE / 8 H
     Route: 048
     Dates: start: 20150911

REACTIONS (9)
  - Cardiac failure [None]
  - Pyelonephritis [None]
  - Culture urine positive [None]
  - Anaemia [None]
  - Inflammation [None]
  - Cystitis [None]
  - Hepatic failure [Not Recovered/Not Resolved]
  - Escherichia test positive [None]
  - Folliculitis [None]

NARRATIVE: CASE EVENT DATE: 20150914
